FAERS Safety Report 16562193 (Version 1)
Quarter: 2019Q3

REPORT INFORMATION
  Report Type: Spontaneous
  Country: US (occurrence: US)
  Receive Date: 20190530
  Receipt Date: 20190530
  Transmission Date: 20191004
  Serious: Yes (Hospitalization)
  Sender: FDA-Public Use
  Company Number: None

PATIENT
  Age: 50 Year
  Sex: Female
  Weight: 102.6 kg

DRUGS (21)
  1. GABAPENTIN. [Concomitant]
     Active Substance: GABAPENTIN
  2. ONDANSETRON [Concomitant]
     Active Substance: ONDANSETRON
  3. TRAZODONE [Concomitant]
     Active Substance: TRAZODONE HYDROCHLORIDE
  4. SUCRALFATE. [Concomitant]
     Active Substance: SUCRALFATE
  5. FERROUS SULFATE. [Concomitant]
     Active Substance: FERROUS SULFATE
  6. OXYCODONE [Concomitant]
     Active Substance: OXYCODONE
  7. FOLIC ACID. [Concomitant]
     Active Substance: FOLIC ACID
  8. HYDROCHLOROTHIAZIDE. [Concomitant]
     Active Substance: HYDROCHLOROTHIAZIDE
  9. LISINOPRIL. [Concomitant]
     Active Substance: LISINOPRIL
  10. SERTRALINE [Concomitant]
     Active Substance: SERTRALINE HYDROCHLORIDE
  11. ALBUTERNOL [Concomitant]
  12. OMEPRAZOLE. [Concomitant]
     Active Substance: OMEPRAZOLE
  13. CARBOPLATIN. [Suspect]
     Active Substance: CARBOPLATIN
     Dates: end: 20190513
  14. AMLODIPINE [Concomitant]
     Active Substance: AMLODIPINE BESYLATE
  15. IBUPROFEN. [Concomitant]
     Active Substance: IBUPROFEN
  16. MIRTAZAPINE. [Concomitant]
     Active Substance: MIRTAZAPINE
  17. OMEPRAZOLE. [Concomitant]
     Active Substance: OMEPRAZOLE
  18. DOCUSATE SODIUM. [Concomitant]
     Active Substance: DOCUSATE SODIUM
  19. FAMOTIDINE. [Concomitant]
     Active Substance: FAMOTIDINE
  20. LORATADINE. [Concomitant]
     Active Substance: LORATADINE
  21. QUETIAPINE. [Concomitant]
     Active Substance: QUETIAPINE

REACTIONS (4)
  - Nephrolithiasis [None]
  - Haematuria [None]
  - Haematochezia [None]
  - Haemoglobin decreased [None]

NARRATIVE: CASE EVENT DATE: 20190515
